FAERS Safety Report 5702754-0 (Version None)
Quarter: 2008Q2

REPORT INFORMATION
  Report Type: 
  Country: None (occurrence: None)
  Receive Date: 20080411
  Receipt Date: 20080331
  Transmission Date: 20081010
  Serious: Yes (Hospitalization)
  Sender: FDA-Public Use
  Company Number: B0515143A

PATIENT
  Age: 50 Year
  Sex: Female

DRUGS (2)
  1. ZOPHREN [Suspect]
     Indication: PREMEDICATION
     Dosage: 1UNIT PER DAY
     Route: 042
     Dates: start: 20080305, end: 20080305
  2. DOXORUBICIN HCL [Suspect]
     Indication: OVARIAN CANCER
     Dosage: 60MG PER DAY
     Route: 042
     Dates: start: 20080305, end: 20080305

REACTIONS (2)
  - ERYTHEMA [None]
  - FEELING HOT [None]
